FAERS Safety Report 13568827 (Version 2)
Quarter: 2017Q3

REPORT INFORMATION
  Report Type: Spontaneous
  Country: US (occurrence: US)
  Receive Date: 20170522
  Receipt Date: 20170710
  Transmission Date: 20171127
  Serious: No
  Sender: FDA-Public Use
  Company Number: US-SHIRE-US201711109

PATIENT
  Age: 79 Year
  Sex: Male
  Weight: 86.17 kg

DRUGS (1)
  1. FOSRENOL [Suspect]
     Active Substance: LANTHANUM CARBONATE
     Indication: PRODUCT USED FOR UNKNOWN INDICATION
     Dosage: 500 MG, 3X/DAY:TID
     Route: 048
     Dates: start: 201705, end: 201705

REACTIONS (3)
  - Asthenia [Recovering/Resolving]
  - Faeces hard [Unknown]
  - Drug ineffective [Recovered/Resolved]

NARRATIVE: CASE EVENT DATE: 201705
